FAERS Safety Report 7499629-6 (Version None)
Quarter: 2011Q2

REPORT INFORMATION
  Report Type: 
  Country: None (occurrence: None)
  Receive Date: 20110524
  Receipt Date: 20110518
  Transmission Date: 20111010
  Serious: Yes (Hospitalization)
  Sender: FDA-Public Use
  Company Number: DE-PFIZER INC-2011110108

PATIENT
  Age: 92 Year
  Sex: Male

DRUGS (5)
  1. AMIODARONE HYDROCHLORIDE [Suspect]
     Dosage: UNK
     Dates: start: 20100101
  2. LEVOTHYROXINE SODIUM [Concomitant]
  3. METOPROLOL [Concomitant]
  4. CITALOPRAM [Concomitant]
  5. MARCUMAR [Concomitant]

REACTIONS (2)
  - PULMONARY FIBROSIS [None]
  - PNEUMONIA PRIMARY ATYPICAL [None]
